FAERS Safety Report 11377385 (Version 1)
Quarter: 2015Q3

REPORT INFORMATION
  Report Type: Spontaneous
  Country: US (occurrence: US)
  Receive Date: 20150811
  Receipt Date: 20150811
  Transmission Date: 20151125
  Serious: No
  Sender: FDA-Public Use
  Company Number: US-ELI_LILLY_AND_COMPANY-US200812000114

PATIENT
  Sex: Female

DRUGS (2)
  1. HUMULIN N [Suspect]
     Active Substance: INSULIN HUMAN
     Dates: start: 2008
  2. HUMULIN R [Suspect]
     Active Substance: INSULIN HUMAN
     Dosage: UNK, AS NEEDED

REACTIONS (3)
  - Feeling abnormal [Unknown]
  - Blood glucose increased [Recovering/Resolving]
  - Fear [Unknown]
